FAERS Safety Report 24060824 (Version 1)
Quarter: 2024Q3

REPORT INFORMATION
  Report Type: Spontaneous
  Country: US (occurrence: None)
  Receive Date: 20240705
  Receipt Date: 20240705
  Transmission Date: 20241016
  Serious: Yes (Death, Hospitalization)
  Sender: Public
  Company Number: None

PATIENT
  Age: 79 Year
  Sex: Male

DRUGS (1)
  1. LENALIDOMIDE [Suspect]
     Active Substance: LENALIDOMIDE
     Indication: Plasma cell myeloma
     Dosage: FREQUENCY : DAILY;?
     Route: 048
     Dates: start: 20200929, end: 202406

REACTIONS (9)
  - Asthenia [None]
  - Weight decreased [None]
  - Mental status changes [None]
  - Acute kidney injury [None]
  - Chronic kidney disease [None]
  - Pancytopenia [None]
  - Hypotension [None]
  - Agitation [None]
  - Abdominal pain [None]

NARRATIVE: CASE EVENT DATE: 20240615
